FAERS Safety Report 18062073 (Version 1)
Quarter: 2020Q3

REPORT INFORMATION
  Report Type: Report from Study
  Country: US (occurrence: US)
  Receive Date: 20200723
  Receipt Date: 20200723
  Transmission Date: 20201103
  Serious: Yes (Hospitalization, Other)
  Sender: FDA-Public Use
  Company Number: US-BIOVITRUM-2020US0889

PATIENT
  Age: 66 Year
  Sex: Female

DRUGS (1)
  1. KINERET [Suspect]
     Active Substance: ANAKINRA
     Indication: STILL^S DISEASE
     Route: 058
     Dates: start: 20191120

REACTIONS (5)
  - Chorioretinitis [Not Recovered/Not Resolved]
  - Hepatic enzyme increased [Unknown]
  - Off label use [Recovered/Resolved]
  - Cerebrovascular accident [Unknown]
  - Acute phase reaction [Unknown]

NARRATIVE: CASE EVENT DATE: 20191120
